FAERS Safety Report 9309247 (Version 1)
Quarter: 2013Q2

REPORT INFORMATION
  Report Type: Spontaneous
  Country: US (occurrence: US)
  Receive Date: 20130525
  Receipt Date: 20130525
  Transmission Date: 20140414
  Serious: No
  Sender: FDA-Public Use
  Company Number: US-BRISTOL-MYERS SQUIBB COMPANY-18700591

PATIENT
  Age: 73 Year
  Sex: Male
  Weight: 86.17 kg

DRUGS (3)
  1. BYDUREON [Suspect]
     Indication: TYPE 2 DIABETES MELLITUS
     Route: 058
     Dates: start: 20130123, end: 20130130
  2. BYETTA [Suspect]
     Indication: TYPE 2 DIABETES MELLITUS
     Dosage: 2010-16JAN13(5 MCG),?06FEB13-ONG (5 MCG).
     Route: 058
     Dates: start: 2010
  3. METFORMIN [Concomitant]
     Indication: TYPE 2 DIABETES MELLITUS
     Route: 048

REACTIONS (2)
  - Injection site nodule [Not Recovered/Not Resolved]
  - Blood glucose increased [Recovered/Resolved]
